FAERS Safety Report 6974886-0 (Version None)
Quarter: 2010Q3

REPORT INFORMATION
  Report Type: 
  Country: None (occurrence: None)
  Receive Date: 20100909
  Receipt Date: 20090107
  Transmission Date: 20110219
  Serious: Yes (Other)
  Sender: FDA-Public Use
  Company Number: US-WYE-H07576009

PATIENT
  Sex: Male
  Weight: 108.96 kg

DRUGS (4)
  1. PRISTIQ [Suspect]
     Indication: DEPRESSION
     Route: 048
     Dates: start: 20081216, end: 20081217
  2. PRISTIQ [Suspect]
     Route: 048
     Dates: start: 20081218, end: 20081219
  3. PRISTIQ [Suspect]
     Route: 048
     Dates: start: 20081220, end: 20081221
  4. PRISTIQ [Suspect]
     Route: 048
     Dates: start: 20081222, end: 20081223

REACTIONS (4)
  - CONDITION AGGRAVATED [None]
  - FEELING ABNORMAL [None]
  - HYPERTENSION [None]
  - LISTLESS [None]
